FAERS Safety Report 8915487 (Version 2)
Quarter: 2012Q4

REPORT INFORMATION
  Report Type: 
  Country: US (occurrence: US)
  Receive Date: 20121119
  Receipt Date: 20121127
  Transmission Date: 20130627
  Serious: Yes (Other)
  Sender: FDA-Public Use
  Company Number: US-BAYER-2012-120703

PATIENT
  Age: 72 Year
  Sex: Female
  Weight: 72 kg

DRUGS (7)
  1. ALEVE CAPLET/TABLET,MIDOL EXTENDED RELIEF CAPLET [Suspect]
     Indication: ARTHRITIS
     Dosage: as needed
     Route: 048
  2. ONE A DAY WOMEN^S 50 [Suspect]
     Dosage: 1 tablet once daily with food
     Route: 048
     Dates: start: 201207
  3. CITRACAL MAXIMUM [Concomitant]
  4. OMEPRAZOLE [Concomitant]
  5. LISINOPRIL/HCTZ [Concomitant]
  6. GENERIC TIME RELEASE TYLENOL [Concomitant]
  7. DIPHENHYDRAMINE HYDROCHLORIDE [Concomitant]

REACTIONS (7)
  - Gastric ulcer [Recovered/Resolved]
  - Gastritis bacterial [Recovered/Resolved]
  - Abdominal pain upper [Recovered/Resolved]
  - Hair disorder [None]
  - Incorrect drug administration duration [None]
  - Overdose [None]
  - Rash [None]
